FAERS Safety Report 4675384-X (Version None)
Quarter: 2005Q2

REPORT INFORMATION
  Report Type: 
  Country: None (occurrence: None)
  Receive Date: 20050527
  Receipt Date: 20050211
  Transmission Date: 20051028
  Serious: Yes (Hospitalization)
  Sender: FDA-Public Use
  Company Number: US-BRISTOL-MYERS SQUIBB COMPANY-12860524

PATIENT
  Age: 35 Year
  Sex: Female

DRUGS (8)
  1. ABILIFY [Suspect]
     Route: 048
     Dates: start: 20021220
  2. ESKALITH [Concomitant]
  3. AMBIEN [Concomitant]
  4. LEXAPRO [Concomitant]
  5. TRILAFON [Concomitant]
  6. IMITREX [Concomitant]
  7. VICODIN [Concomitant]
  8. KLONOPIN [Concomitant]

REACTIONS (1)
  - CHOLELITHIASIS [None]
